FAERS Safety Report 9867981 (Version 2)
Quarter: 2014Q1

REPORT INFORMATION
  Report Type: Report from Study
  Country: GB (occurrence: GB)
  Receive Date: 20140204
  Receipt Date: 20140204
  Transmission Date: 20141002
  Serious: Yes (Life-Threatening, Hospitalization)
  Sender: FDA-Public Use
  Company Number: GB-SANOFI-AVENTIS-2012SA012405

PATIENT
  Age: 61 Year
  Sex: Female

DRUGS (4)
  1. TERIFLUNOMIDE [Suspect]
     Indication: MULTIPLE SCLEROSIS RELAPSE
     Dosage: DOSE:1 UNIT(S)
     Route: 048
     Dates: start: 20070420
  2. AMITRIPTYLINE [Concomitant]
     Indication: MULTIPLE SCLEROSIS RELAPSE
     Route: 048
  3. PROPRANOLOL [Concomitant]
     Indication: ANXIETY
     Route: 048
     Dates: start: 20120201
  4. BUCCASTEM [Concomitant]
     Indication: VERTIGO
     Dates: start: 20120201

REACTIONS (1)
  - Pulmonary embolism [Recovered/Resolved with Sequelae]
